FAERS Safety Report 17233027 (Version 1)
Quarter: 2020Q1

REPORT INFORMATION
  Report Type: Spontaneous
  Country: US (occurrence: US)
  Receive Date: 20200104
  Receipt Date: 20200104
  Transmission Date: 20200409
  Serious: No
  Sender: FDA-Public Use
  Company Number: US-TEVA-2019-US-1162105

PATIENT
  Sex: Female

DRUGS (2)
  1. CLOBETASOL [Suspect]
     Active Substance: CLOBETASOL
     Dosage: FORM STRENGTH AND UNIT DOSE UNKNOWN
     Route: 065
  2. MINOXIDIL 5% [Suspect]
     Active Substance: MINOXIDIL
     Dosage: SOLUTION
     Route: 065

REACTIONS (4)
  - Pruritus [Unknown]
  - Skin swelling [Unknown]
  - Skin irritation [Unknown]
  - Product use issue [Unknown]
